FAERS Safety Report 11713777 (Version 1)
Quarter: 2015Q4

REPORT INFORMATION
  Report Type: Spontaneous
  Country: US (occurrence: US)
  Receive Date: 20151109
  Receipt Date: 20151109
  Transmission Date: 20160304
  Serious: No
  Sender: FDA-Public Use
  Company Number: US-BAYER-2015-463865

PATIENT
  Age: 82 Year
  Sex: Female
  Weight: 68.27 kg

DRUGS (3)
  1. INDAPAMIDE. [Concomitant]
     Active Substance: INDAPAMIDE
  2. OXYTROL FOR WOMEN [Suspect]
     Active Substance: OXYBUTYNIN
     Dosage: 1 DF, PRN
     Route: 061
     Dates: start: 2014
  3. TYLENOL [Concomitant]
     Active Substance: ACETAMINOPHEN

REACTIONS (1)
  - Product use issue [None]

NARRATIVE: CASE EVENT DATE: 2015
